FAERS Safety Report 9090081 (Version 1)
Quarter: 2013Q1

REPORT INFORMATION
  Report Type: Report from Study
  Country: US (occurrence: US)
  Receive Date: 20130201
  Receipt Date: 20130201
  Transmission Date: 20140127
  Serious: Yes (Other)
  Sender: FDA-Public Use
  Company Number: US-BAYER-2013-010610

PATIENT
  Age: 86 Year
  Sex: Male

DRUGS (1)
  1. STIVARGA [Suspect]
     Indication: COLON CANCER
     Dosage: 4 X 40
     Route: 048
     Dates: start: 20130122

REACTIONS (2)
  - Cognitive disorder [None]
  - Abdominal discomfort [None]
